FAERS Safety Report 9426003 (Version 2)
Quarter: 2014Q2

REPORT INFORMATION
  Report Type: Spontaneous
  Country: US (occurrence: US)
  Receive Date: 20130730
  Receipt Date: 20140410
  Transmission Date: 20141212
  Serious: Yes (Hospitalization, Other)
  Sender: FDA-Public Use
  Company Number: US-TEVA-421081USA

PATIENT
  Age: 32 Year
  Sex: Male

DRUGS (6)
  1. BENZATROPINE [Suspect]
     Dosage: 4 MILLIGRAM DAILY;
     Route: 065
  2. HALOPERIDOL [Suspect]
     Dosage: 2MG IN THE MORNING AND 5MG AT BEDTIME
     Route: 065
  3. CHLORPROMAZINE [Suspect]
     Dosage: 200 MILLIGRAM DAILY;
     Route: 065
  4. CITALOPRAM [Concomitant]
     Route: 065
  5. VALPROATE SEMISODIUM [Concomitant]
     Route: 065
  6. HYDROXYZINE [Concomitant]
     Route: 065

REACTIONS (1)
  - Neuroleptic malignant syndrome [Unknown]
